FAERS Safety Report 12223261 (Version 4)
Quarter: 2016Q2

REPORT INFORMATION
  Report Type: Spontaneous
  Country: OM (occurrence: OM)
  Receive Date: 20160330
  Receipt Date: 20160510
  Transmission Date: 20160815
  Serious: Yes (Other)
  Sender: FDA-Public Use
  Company Number: OM-ELI_LILLY_AND_COMPANY-OM201603010648

PATIENT
  Age: 52 Year
  Sex: Male
  Weight: 73 kg

DRUGS (2)
  1. ERBITUX [Suspect]
     Active Substance: CETUXIMAB
     Dosage: UNK UNK, UNKNOWN
     Route: 065
     Dates: start: 20160321
  2. ERBITUX [Suspect]
     Active Substance: CETUXIMAB
     Indication: COLORECTAL CANCER METASTATIC
     Dosage: 500 MG/M2, UNK
     Route: 042
     Dates: start: 20160306, end: 20160306

REACTIONS (7)
  - Flushing [Recovered/Resolved]
  - Scleral pigmentation [Recovered/Resolved]
  - Inappropriate schedule of drug administration [Unknown]
  - Rash papular [Recovered/Resolved]
  - Periorbital oedema [Recovered/Resolved]
  - Chest discomfort [Unknown]
  - Nasal congestion [Unknown]

NARRATIVE: CASE EVENT DATE: 20160306
